FAERS Safety Report 13241149 (Version 2)
Quarter: 2017Q2

REPORT INFORMATION
  Report Type: Report from Study
  Country: FR (occurrence: FR)
  Receive Date: 20170216
  Receipt Date: 20170411
  Transmission Date: 20170830
  Serious: Yes (Other)
  Sender: FDA-Public Use
  Company Number: FR-AMGEN-FRASP2017023044

PATIENT
  Age: 77 Year
  Sex: Female
  Weight: 64 kg

DRUGS (14)
  1. CARFILZOMIB [Suspect]
     Active Substance: CARFILZOMIB
     Indication: PLASMA CELL MYELOMA
     Dosage: 20 MG/M2, DAY ONE AND TWO
     Route: 042
     Dates: start: 20161213, end: 20161214
  2. ZELITREX [Concomitant]
     Active Substance: VALACYCLOVIR HYDROCHLORIDE
     Indication: PROPHYLAXIS
     Dosage: 500 MG, BID
     Dates: start: 20161213, end: 20161226
  3. CARFILZOMIB [Suspect]
     Active Substance: CARFILZOMIB
     Dosage: 27 MG/M2, DAY 15 ABD 16
     Route: 042
  4. OMEPRAZOLE. [Concomitant]
     Active Substance: OMEPRAZOLE
     Indication: PROPHYLAXIS
     Dosage: 20 MG, QD
     Dates: start: 20161213, end: 20161226
  5. REVLIMID [Suspect]
     Active Substance: LENALIDOMIDE
     Dosage: 25 MG, DAY ONE TO SEVEN
     Route: 065
     Dates: start: 20170117, end: 20170210
  6. CARFILZOMIB [Suspect]
     Active Substance: CARFILZOMIB
     Dosage: 27 MG/M2, DAY EIGHT AND NINE
     Route: 042
     Dates: start: 20161220, end: 20161221
  7. CARFILZOMIB [Suspect]
     Active Substance: CARFILZOMIB
     Dosage: 20MG/M2, DAY EIGHT AND NINE
     Route: 042
     Dates: start: 2017, end: 2017
  8. REVLIMID [Suspect]
     Active Substance: LENALIDOMIDE
     Indication: PLASMA CELL MYELOMA
     Dosage: 25 MG, DAY ONE TO FOURTEEN, 21/28 DAYS
     Route: 065
     Dates: start: 20161213, end: 20161226
  9. CARFILZOMIB [Suspect]
     Active Substance: CARFILZOMIB
     Dosage: 27 MG/M2, DAY ONE AND TWO
     Route: 042
     Dates: start: 20170117, end: 20170118
  10. DEXAMETHASONE. [Concomitant]
     Active Substance: DEXAMETHASONE
     Dosage: UNK
     Dates: start: 20170214, end: 2017
  11. CARFILZOMIB [Suspect]
     Active Substance: CARFILZOMIB
     Dosage: 27 MG/M2, DAY EIGHT AND NINE
     Route: 042
  12. CARFILZOMIB [Suspect]
     Active Substance: CARFILZOMIB
     Dosage: 20 MG/M2, DAY ONE AND TWO
     Route: 042
     Dates: start: 20170214, end: 20170215
  13. DEXAMETHASONE. [Concomitant]
     Active Substance: DEXAMETHASONE
     Indication: PLASMA CELL MYELOMA
     Dosage: 40 MG, DAY ONE TO EIGHT
     Dates: start: 20161213
  14. DEXAMETHASONE. [Concomitant]
     Active Substance: DEXAMETHASONE
     Dosage: 40 MG, DAY ONE
     Dates: start: 20170117

REACTIONS (2)
  - Hepatitis [Recovered/Resolved]
  - Cholestasis [Unknown]

NARRATIVE: CASE EVENT DATE: 20161226
